FAERS Safety Report 7315662-9 (Version None)
Quarter: 2011Q1

REPORT INFORMATION
  Report Type: 
  Country: None (occurrence: None)
  Receive Date: 20110225
  Receipt Date: 20110214
  Transmission Date: 20110831
  Serious: Yes (Other)
  Sender: FDA-Public Use
  Company Number: US-ROCHE-738860

PATIENT
  Sex: Male
  Weight: 86.2 kg

DRUGS (2)
  1. ACCUTANE [Suspect]
     Route: 065
     Dates: start: 19960101, end: 19970101
  2. ACCUTANE [Suspect]
     Indication: ACNE
     Route: 065
     Dates: start: 19940101, end: 19960101

REACTIONS (10)
  - INFLAMMATORY BOWEL DISEASE [None]
  - CHEST PAIN [None]
  - CROHN'S DISEASE [None]
  - COLITIS ULCERATIVE [None]
  - RASH [None]
  - COLONIC POLYP [None]
  - GASTROINTESTINAL HAEMORRHAGE [None]
  - HAEMORRHOIDS [None]
  - BRONCHITIS [None]
  - GASTROINTESTINAL INJURY [None]
